FAERS Safety Report 9968305 (Version 1)
Quarter: 2014Q1

REPORT INFORMATION
  Report Type: Report from Study
  Country: US (occurrence: US)
  Receive Date: 20140306
  Receipt Date: 20140306
  Transmission Date: 20141002
  Serious: No
  Sender: FDA-Public Use
  Company Number: US-ABBVIE-13P-163-1143036-00

PATIENT
  Sex: Female

DRUGS (33)
  1. HUMIRA [Suspect]
     Indication: PSORIATIC ARTHROPATHY
     Dates: start: 201211
  2. OXYGEN [Concomitant]
     Indication: PULMONARY FIBROSIS
     Dosage: CONTINUOUS
  3. LANTUS [Concomitant]
     Indication: DIABETES MELLITUS
     Route: 058
  4. METFORMIN [Concomitant]
     Indication: DIABETES MELLITUS
  5. GLIMEPIRIDE [Concomitant]
     Indication: DIABETES MELLITUS
  6. PREDNISONE [Concomitant]
     Indication: PRODUCT USED FOR UNKNOWN INDICATION
  7. SYNTHROID [Concomitant]
     Indication: HYPOTHYROIDISM
  8. LISINOPRIL [Concomitant]
     Indication: HYPERTENSION
  9. FUROSEMIDE [Concomitant]
     Indication: FLUID RETENTION
  10. POTASSIUM [Concomitant]
     Indication: PRODUCT USED FOR UNKNOWN INDICATION
  11. NEURONTIN [Concomitant]
     Indication: PAIN IN EXTREMITY
  12. VENLAFAXINE [Concomitant]
     Indication: INSOMNIA
  13. MORPHINE [Concomitant]
     Indication: SPINAL COLUMN STENOSIS
  14. MORPHINE [Concomitant]
     Indication: PAIN
  15. ROBAXIN [Concomitant]
     Indication: MUSCLE SPASMS
  16. SUMATRIPTAM [Concomitant]
     Indication: MIGRAINE
  17. LOPID [Concomitant]
     Indication: BLOOD TRIGLYCERIDES INCREASED
  18. ALLOPURINOL [Concomitant]
     Indication: GOUT
  19. FOLIC ACID [Concomitant]
     Indication: PRODUCT USED FOR UNKNOWN INDICATION
  20. PHENERGAN [Concomitant]
     Indication: NAUSEA
     Dosage: 1 - 2 TABLETS EVERY 6 HOURS AS NEEDED
  21. MIRAPEX [Concomitant]
     Indication: RESTLESS LEGS SYNDROME
  22. RESTASIS [Concomitant]
     Indication: DRY EYE
     Dosage: EACH EYE
  23. ALPHAGAN [Concomitant]
     Indication: GLAUCOMA
     Dosage: EACH EYE
  24. PROPANOLOL [Concomitant]
     Indication: CARDIAC DISORDER
  25. MELATONIN [Concomitant]
     Indication: INSOMNIA
  26. MUCUS RELEASE [Concomitant]
     Indication: SINUS CONGESTION
  27. OMEPRAZOLE [Concomitant]
     Indication: ULCER HAEMORRHAGE
  28. FISH OIL [Concomitant]
     Indication: PRODUCT USED FOR UNKNOWN INDICATION
  29. CALCIUM + VITAMIN D [Concomitant]
     Indication: PRODUCT USED FOR UNKNOWN INDICATION
  30. DIPHENHYDRAMINE [Concomitant]
     Indication: HYPERSENSITIVITY
  31. CRANBERRY [Concomitant]
     Indication: CYSTITIS
  32. EYE VITAMINS [Concomitant]
     Indication: PRODUCT USED FOR UNKNOWN INDICATION
  33. PROBIOTICS [Concomitant]
     Indication: IRRITABLE BOWEL SYNDROME

REACTIONS (6)
  - Gait disturbance [Not Recovered/Not Resolved]
  - Injection site pain [Not Recovered/Not Resolved]
  - Skin haemorrhage [Not Recovered/Not Resolved]
  - Fall [Not Recovered/Not Resolved]
  - Contusion [Not Recovered/Not Resolved]
  - Erythrosis [Not Recovered/Not Resolved]
